FAERS Safety Report 24384021 (Version 2)
Quarter: 2024Q4

REPORT INFORMATION
  Report Type: Spontaneous
  Country: FR (occurrence: FR)
  Receive Date: 20241001
  Receipt Date: 20241119
  Transmission Date: 20250115
  Serious: Yes (Other)
  Sender: ORGANON
  Company Number: None

PATIENT
  Age: 43 Year
  Sex: Female

DRUGS (3)
  1. BETAMETHASONE DIPROPIONATE\BETAMETHASONE SODIUM PHOSPHATE [Suspect]
     Active Substance: BETAMETHASONE DIPROPIONATE\BETAMETHASONE SODIUM PHOSPHATE
     Indication: Joint injection
     Dosage: 1 DOSAGE FORM, ONCE (TOTAL)
     Route: 014
     Dates: start: 20031018, end: 20031018
  2. HEXABRIX [Suspect]
     Active Substance: IOXAGLATE MEGLUMINE\IOXAGLATE SODIUM
     Indication: Arthrogram
     Dosage: 1 DOSAGE FORM, ONCE (TOTAL)
     Route: 014
     Dates: start: 20031018, end: 20031018
  3. XYLOCAINE [Suspect]
     Active Substance: LIDOCAINE HYDROCHLORIDE
     Indication: Joint injection
     Dosage: 1 DOSAGE FORM, ONCE (TOTAL)
     Route: 014
     Dates: start: 20031018, end: 20031018

REACTIONS (4)
  - Loss of consciousness [Recovered/Resolved]
  - Rash [Recovered/Resolved]
  - Oedema [Recovered/Resolved]
  - Feeling hot [Recovered/Resolved]

NARRATIVE: CASE EVENT DATE: 20031018
